FAERS Safety Report 4849940-X (Version None)
Quarter: 2005Q4

REPORT INFORMATION
  Report Type: 
  Country: None (occurrence: None)
  Receive Date: 20051101
  Receipt Date: 20050401
  Transmission Date: 20060501
  Serious: Yes (Hospitalization)
  Sender: FDA-Public Use
  Company Number: 2005S1002038

PATIENT
  Age: 54 Year
  Sex: Male
  Weight: 34.0198 kg

DRUGS (2)
  1. CLOZAPINE [Suspect]
     Indication: SCHIZOPHRENIA
     Dosage: 600 MG;HS;PO
     Route: 048
     Dates: end: 20050201
  2. VALPROATE SODIUM [Concomitant]

REACTIONS (1)
  - INTESTINAL OBSTRUCTION [None]
